FAERS Safety Report 12506287 (Version 1)
Quarter: 2016Q2

REPORT INFORMATION
  Report Type: Spontaneous
  Country: US (occurrence: US)
  Receive Date: 20160628
  Receipt Date: 20160628
  Transmission Date: 20160815
  Serious: Yes (Other)
  Sender: FDA-Public Use
  Company Number: US-BRACCO-012143

PATIENT
  Age: 40 Year
  Sex: Female

DRUGS (5)
  1. PREDNISONE. [Concomitant]
     Active Substance: PREDNISONE
     Dosage: ADMINISTERED 1 HR PRIOR TO MRI PROCEDURE
     Route: 048
     Dates: start: 20150504, end: 20150504
  2. PREDNISONE. [Concomitant]
     Active Substance: PREDNISONE
     Dosage: ADMINISTERED 7 HR PRIOR TO MRI STUDY
     Route: 048
     Dates: start: 201505, end: 201505
  3. PROHANCE [Suspect]
     Active Substance: GADOTERIDOL
     Indication: NUCLEAR MAGNETIC RESONANCE IMAGING SPINAL
     Route: 042
     Dates: start: 20150504, end: 20150504
  4. PREDNISONE. [Concomitant]
     Active Substance: PREDNISONE
     Dosage: ADMINISTERED 13 HR PRIOR TO MRI STUDY
     Route: 048
     Dates: start: 201505, end: 201505
  5. BENADRYL [Concomitant]
     Active Substance: DIPHENHYDRAMINE HYDROCHLORIDE
     Dates: start: 20150504, end: 20150504

REACTIONS (1)
  - Hypersensitivity [Recovered/Resolved]

NARRATIVE: CASE EVENT DATE: 20150504
